FAERS Safety Report 13841025 (Version 1)
Quarter: 2017Q3

REPORT INFORMATION
  Report Type: Spontaneous
  Country: US (occurrence: US)
  Receive Date: 20170807
  Receipt Date: 20170807
  Transmission Date: 20171127
  Serious: No
  Sender: FDA-Public Use
  Company Number: US-BAYER-2017-149513

PATIENT
  Age: 14 Year
  Sex: Male
  Weight: 52.97 kg

DRUGS (2)
  1. MIRALAX [Suspect]
     Active Substance: POLYETHYLENE GLYCOL 3350
     Indication: DRUG INEFFECTIVE FOR UNAPPROVED INDICATION
     Dosage: ;1 DOSE DAILY DOSE
     Route: 048
     Dates: start: 20170802
  2. MIRALAX [Suspect]
     Active Substance: POLYETHYLENE GLYCOL 3350
     Indication: DRUG INEFFECTIVE FOR UNAPPROVED INDICATION
     Dosage: UNK

REACTIONS (4)
  - Product use in unapproved indication [Unknown]
  - Drug administered to patient of inappropriate age [Unknown]
  - Off label use [Unknown]
  - Circumstance or information capable of leading to medication error [Unknown]

NARRATIVE: CASE EVENT DATE: 20170802
